FAERS Safety Report 21264667 (Version 1)
Quarter: 2022Q3

REPORT INFORMATION
  Report Type: Spontaneous
  Country: US (occurrence: US)
  Receive Date: 20220829
  Receipt Date: 20220829
  Transmission Date: 20221026
  Serious: No
  Sender: FDA-Public Use
  Company Number: US-BRISTOL-MYERS SQUIBB COMPANY-2022-092380

PATIENT
  Age: 14 Year
  Sex: Male

DRUGS (1)
  1. SPRYCEL [Suspect]
     Active Substance: DASATINIB
     Indication: Brain neoplasm malignant
     Dosage: THERAPY GIVEN ON DAYS 8-42
     Route: 048
     Dates: start: 20220503

REACTIONS (1)
  - Intentional product use issue [Unknown]
